FAERS Safety Report 18819234 (Version 1)
Quarter: 2021Q1

REPORT INFORMATION
  Report Type: Spontaneous
  Country: IE (occurrence: IE)
  Receive Date: 20210201
  Receipt Date: 20210201
  Transmission Date: 20210419
  Serious: Yes (Other)
  Sender: FDA-Public Use
  Company Number: IE-PFIZER INC-2021074262

PATIENT
  Age: 64 Year
  Sex: Male

DRUGS (9)
  1. ATORVASTATIN CALCIUM. [Suspect]
     Active Substance: ATORVASTATIN CALCIUM
     Indication: HYPERCHOLESTEROLAEMIA
     Dosage: 80 MG, FREQ:24 H
     Route: 048
  2. VITAMIN D [ERGOCALCIFEROL] [Concomitant]
     Active Substance: ERGOCALCIFEROL
     Dosage: 3000 IU, FREQ:24 H
  3. BISOP [Concomitant]
     Dosage: 2.5 MG, FREQ:24 H
  4. LANSOPRAZOLE. [Concomitant]
     Active Substance: LANSOPRAZOLE
     Dosage: 30 MG, FREQ:24 H
  5. NUPRIN [ACETYLSALICYLIC ACID] [Concomitant]
     Dosage: 75 MG, FREQ:24 H
  6. EZETIMIBE. [Concomitant]
     Active Substance: EZETIMIBE
     Dosage: UNK
     Dates: start: 2020, end: 2021
  7. IRON [Concomitant]
     Active Substance: IRON
     Dosage: UNK
  8. TRITACE [Concomitant]
     Active Substance: RAMIPRIL
     Dosage: 5 MG, FREQ:24 H
  9. OMEGA 3 [FISH OIL] [Concomitant]
     Active Substance: FISH OIL
     Dosage: 1000 MG

REACTIONS (3)
  - Pain in extremity [Recovered/Resolved]
  - Asthenia [Recovered/Resolved]
  - Gait inability [Recovered/Resolved]
